FAERS Safety Report 20499124 (Version 1)
Quarter: 2022Q1

REPORT INFORMATION
  Report Type: Spontaneous
  Country: JP (occurrence: JP)
  Receive Date: 20220222
  Receipt Date: 20220222
  Transmission Date: 20220424
  Serious: Yes (Hospitalization, Other)
  Sender: FDA-Public Use
  Company Number: JP-BRISTOL-MYERS SQUIBB COMPANY-BMS-2022-024340

PATIENT
  Age: 84 Year
  Sex: Female

DRUGS (1)
  1. ELIQUIS [Suspect]
     Active Substance: APIXABAN
     Indication: Pain management
     Dosage: 5 MILLIGRAM, QD
     Route: 065

REACTIONS (3)
  - Hyperkalaemia [Unknown]
  - Faeces discoloured [Unknown]
  - Blood pressure decreased [Unknown]
